FAERS Safety Report 13974017 (Version 2)
Quarter: 2017Q3

REPORT INFORMATION
  Report Type: Report from Study
  Country: TR (occurrence: TR)
  Receive Date: 20170915
  Receipt Date: 20170920
  Transmission Date: 20171128
  Serious: Yes (Death)
  Sender: FDA-Public Use
  Company Number: TR-SA-2017SA168533

PATIENT
  Age: 13 Year
  Sex: Female
  Weight: 50 kg

DRUGS (3)
  1. CAMPATH [Suspect]
     Active Substance: ALEMTUZUMAB
     Indication: APLASTIC ANAEMIA
     Route: 041
     Dates: start: 20170824, end: 20170824
  2. CAMPATH [Suspect]
     Active Substance: ALEMTUZUMAB
     Indication: APLASTIC ANAEMIA
     Route: 041
     Dates: start: 20170823, end: 20170823
  3. CAMPATH [Suspect]
     Active Substance: ALEMTUZUMAB
     Indication: APLASTIC ANAEMIA
     Route: 041
     Dates: start: 20170825, end: 20170825

REACTIONS (4)
  - Off label use [Unknown]
  - Sepsis [Fatal]
  - Rash [Unknown]
  - Multiple organ dysfunction syndrome [Fatal]

NARRATIVE: CASE EVENT DATE: 20170828
